FAERS Safety Report 7863783-4 (Version None)
Quarter: 2011Q4

REPORT INFORMATION
  Report Type: 
  Country: None (occurrence: None)
  Receive Date: 20111028
  Receipt Date: 20111019
  Transmission Date: 20120403
  Serious: Yes (Hospitalization)
  Sender: FDA-Public Use
  Company Number: US-BIOGENIDEC-2011BI032830

PATIENT
  Age: 43 Year
  Sex: Female

DRUGS (3)
  1. TYSABRI [Suspect]
     Indication: MULTIPLE SCLEROSIS
     Route: 042
     Dates: start: 20061019, end: 20110623
  2. TYSABRI [Suspect]
     Route: 042
     Dates: start: 20050106
  3. TYSABRI [Suspect]
     Route: 042
     Dates: start: 20110929

REACTIONS (3)
  - BLADDER DISORDER [None]
  - URINARY TRACT DISORDER [None]
  - GASTROINTESTINAL DISORDER [None]
